FAERS Safety Report 4292438-0 (Version None)
Quarter: 2004Q1

REPORT INFORMATION
  Report Type: 
  Country: None (occurrence: None)
  Receive Date: 20040126
  Receipt Date: 20030827
  Transmission Date: 20041129
  Serious: No
  Sender: FDA-Public Use
  Company Number: USA030742811

PATIENT
  Age: 76 Year
  Sex: Female
  Weight: 54 kg

DRUGS (14)
  1. FORTEO [Suspect]
     Indication: OSTEOPOROSIS
     Dosage: 20 UG/DAY
     Dates: start: 20030714
  2. COUMADIN [Concomitant]
  3. ZOLOFT [Concomitant]
  4. IMIPRAMINE [Concomitant]
  5. CELEBREX [Concomitant]
  6. DEPO-RALOVERA (MEDROXYPROGESTERONE ACETATE) [Concomitant]
  7. PROPACET 100 [Concomitant]
  8. VITAMIN D [Concomitant]
  9. MIACALCIN [Concomitant]
  10. VITAMIN C [Concomitant]
  11. VITAMIN E [Concomitant]
  12. CLARINEX [Concomitant]
  13. THYROXINE [Concomitant]
  14. PRAVACHOL [Concomitant]

REACTIONS (5)
  - ARTHRALGIA [None]
  - BLOOD DISORDER [None]
  - BRONCHITIS [None]
  - DYSPNOEA [None]
  - ILL-DEFINED DISORDER [None]
